FAERS Safety Report 4337742-2 (Version None)
Quarter: 2004Q2

REPORT INFORMATION
  Report Type: 
  Country: None (occurrence: None)
  Receive Date: 20040408
  Receipt Date: 20040329
  Transmission Date: 20050107
  Serious: No
  Sender: FDA-Public Use
  Company Number: 2004SE01763

PATIENT
  Sex: Female

DRUGS (1)
  1. ZOMIG [Suspect]
     Indication: MIGRAINE

REACTIONS (5)
  - AMNESIA [None]
  - ARTHRALGIA [None]
  - CHEST PAIN [None]
  - DRUG ABUSER [None]
  - NECK PAIN [None]
